FAERS Safety Report 16501155 (Version 1)
Quarter: 2019Q3

REPORT INFORMATION
  Report Type: Spontaneous
  Country: IT (occurrence: IT)
  Receive Date: 20190701
  Receipt Date: 20190701
  Transmission Date: 20191004
  Serious: Yes (Hospitalization, Other)
  Sender: FDA-Public Use
  Company Number: IT-SA-2019SA174410

PATIENT
  Sex: Female

DRUGS (1)
  1. AUBAGIO [Suspect]
     Active Substance: TERIFLUNOMIDE
     Dosage: UNK
     Route: 048

REACTIONS (4)
  - Deep vein thrombosis [Unknown]
  - Drug delivery system removal [Unknown]
  - Anaemia [Unknown]
  - Thrombocytopenia [Unknown]
